FAERS Safety Report 7920431-2 (Version None)
Quarter: 2011Q4

REPORT INFORMATION
  Report Type: 
  Country: None (occurrence: None)
  Receive Date: 20111117
  Receipt Date: 20111107
  Transmission Date: 20120403
  Serious: Yes (Hospitalization)
  Sender: FDA-Public Use
  Company Number: PHHY2011DE097742

PATIENT
  Sex: Female
  Weight: 66 kg

DRUGS (6)
  1. TOLTERODINE TARTRATE [Concomitant]
     Indication: URINARY INCONTINENCE
     Dosage: 4 MG, QD
     Route: 048
     Dates: start: 20111001
  2. INSULIN [Concomitant]
     Indication: DIABETES MELLITUS
     Dosage: UNK UKN, UNK
     Route: 058
     Dates: start: 20111001
  3. CARVEDILOL [Concomitant]
     Indication: HYPERTENSION
     Dosage: 12 MG, 5 MG /DAY
     Route: 048
  4. TORSEMIDE [Concomitant]
     Indication: HYPERTENSION
     Dosage: 10 MG, QD
     Route: 048
  5. ALLOPURINOL [Concomitant]
     Indication: HYPERURICAEMIA
     Dosage: 100 MG, QD
     Route: 048
  6. TASIGNA [Suspect]
     Indication: CHRONIC MYELOID LEUKAEMIA
     Dosage: 400 MG/DAY
     Route: 048
     Dates: start: 20110908

REACTIONS (1)
  - HYPERGLYCAEMIA [None]
